FAERS Safety Report 11496004 (Version 1)
Quarter: 2015Q3

REPORT INFORMATION
  Report Type: Spontaneous
  Country: IE (occurrence: IE)
  Receive Date: 20150911
  Receipt Date: 20150911
  Transmission Date: 20151125
  Serious: Yes (Other)
  Sender: FDA-Public Use
  Company Number: IE-TEVA-591259ISR

PATIENT
  Age: 2 Year
  Sex: Male

DRUGS (3)
  1. SALAMOL EASI-BREATHE CFC-FREE INHALER [Concomitant]
     Indication: ASTHMA
     Dosage: PRESSURISED INHALATION, SUSPENSION
  2. BECLAZONE EASI BREATHE CFC-FREE INHALER [Concomitant]
     Indication: ASTHMA
     Dosage: PRESSURISED INHALATION, SOLUTION
  3. MONTELUKAST TEVA [Suspect]
     Active Substance: MONTELUKAST SODIUM
     Indication: ASTHMA
     Dosage: 4 MILLIGRAM DAILY; 4 MILLIGRAM NOCTE
     Dates: start: 2015, end: 20150815

REACTIONS (3)
  - Nightmare [Recovered/Resolved]
  - Somnambulism [Recovered/Resolved]
  - Delirium [Recovered/Resolved]

NARRATIVE: CASE EVENT DATE: 2015
